FAERS Safety Report 6086998-7 (Version None)
Quarter: 2009Q1

REPORT INFORMATION
  Report Type: 
  Country: None (occurrence: None)
  Receive Date: 20090223
  Receipt Date: 20090218
  Transmission Date: 20090719
  Serious: Yes (Hospitalization)
  Sender: FDA-Public Use
  Company Number: US-ASTRAZENECA-2009UW04632

PATIENT
  Age: 79 Year
  Sex: Female

DRUGS (2)
  1. NEXIUM [Suspect]
     Route: 048
     Dates: start: 20060210
  2. CRESTOR [Suspect]
     Route: 048
     Dates: start: 20070928

REACTIONS (2)
  - ANEURYSM [None]
  - KNEE OPERATION [None]
